FAERS Safety Report 22685189 (Version 5)
Quarter: 2023Q4

REPORT INFORMATION
  Report Type: Report from Study
  Country: US (occurrence: US)
  Receive Date: 20230710
  Receipt Date: 20231027
  Transmission Date: 20240109
  Serious: Yes (Hospitalization, Other)
  Sender: FDA-Public Use
  Company Number: US-002147023-NVSC2023US152201

PATIENT
  Age: 77 Year
  Sex: Male
  Weight: 67.1 kg

DRUGS (13)
  1. ENTRESTO [Suspect]
     Active Substance: SACUBITRIL\VALSARTAN
     Indication: Cardiac failure
     Dosage: 1 DOSAGE FORM, BID (24/26 MG)
     Route: 048
     Dates: start: 20230630, end: 20230921
  2. LASIX [Concomitant]
     Active Substance: FUROSEMIDE
     Indication: Product used for unknown indication
     Dosage: UNK
     Route: 065
  3. AMIODARONE [Concomitant]
     Active Substance: AMIODARONE
     Indication: Product used for unknown indication
     Dosage: 1 DOSAGE FORM, BID
     Route: 048
  4. DIGOXIN [Concomitant]
     Active Substance: DIGOXIN
     Indication: Product used for unknown indication
     Dosage: 0.125 MG, QD
     Route: 048
  5. FUROSEMIDE [Concomitant]
     Active Substance: FUROSEMIDE
     Indication: Product used for unknown indication
     Dosage: 40 MG
     Route: 048
  6. LEVOTHYROXINE [Concomitant]
     Active Substance: LEVOTHYROXINE
     Indication: Product used for unknown indication
     Dosage: UNK (1 TAB DAILY MON-SAT AND 1 1/2 TAB ON SUNDAYS)
     Route: 048
  7. ELIQUIS [Concomitant]
     Active Substance: APIXABAN
     Indication: Product used for unknown indication
     Dosage: 5 MG
     Route: 048
  8. METOPROL XL [Concomitant]
     Indication: Product used for unknown indication
     Dosage: UNK, BID
     Route: 065
  9. METOPROLOL SUCCINATE [Concomitant]
     Active Substance: METOPROLOL SUCCINATE
     Indication: Product used for unknown indication
     Dosage: 25 MG, BID
     Route: 065
  10. PREDNISONE [Concomitant]
     Active Substance: PREDNISONE
     Indication: Product used for unknown indication
     Dosage: 50 MG
     Route: 048
  11. ACETAMINOPHEN\HYDROCODONE [Concomitant]
     Active Substance: ACETAMINOPHEN\HYDROCODONE
     Indication: Pain
     Dosage: 1 DOSAGE FORM, Q6H (BY MOUTH EVERY 6 HOURS AS NEEDED)
     Route: 048
  12. VITAMIN D3 [Concomitant]
     Active Substance: CHOLECALCIFEROL
     Indication: Product used for unknown indication
     Dosage: UNK (25 MCG AND 1000 UNITS)
     Route: 048
  13. COLCRYS [Concomitant]
     Active Substance: COLCHICINE
     Indication: Product used for unknown indication
     Dosage: UNK
     Route: 065

REACTIONS (11)
  - Atrial fibrillation [Recovered/Resolved]
  - COVID-19 pneumonia [Recovered/Resolved]
  - Hypotension [Recovered/Resolved]
  - Hypoxia [Unknown]
  - Palpitations [Unknown]
  - Tachycardia [Unknown]
  - Pyrexia [Unknown]
  - Cough [Unknown]
  - Dyspnoea [Unknown]
  - Acute kidney injury [Unknown]
  - Pleural effusion [Unknown]

NARRATIVE: CASE EVENT DATE: 20230921
